FAERS Safety Report 8234522-2 (Version None)
Quarter: 2012Q1

REPORT INFORMATION
  Report Type: 
  Country: None (occurrence: None)
  Receive Date: 20120326
  Receipt Date: 20120313
  Transmission Date: 20120608
  Serious: Yes (Other)
  Sender: FDA-Public Use
  Company Number: JP-ROCHE-1050144

PATIENT
  Sex: Female

DRUGS (2)
  1. TAMIFLU [Suspect]
     Indication: INFLUENZA
     Route: 048
     Dates: start: 20120228, end: 20120229
  2. ACETAMINOPHEN [Concomitant]
     Indication: PYREXIA
     Dosage: SINGLE USE (FIVE BATCHES)
     Route: 065
     Dates: end: 20120228

REACTIONS (1)
  - ABNORMAL BEHAVIOUR [None]
